FAERS Safety Report 7636497-3 (Version None)
Quarter: 2011Q3

REPORT INFORMATION
  Report Type: 
  Country: None (occurrence: None)
  Receive Date: 20110726
  Receipt Date: 20110715
  Transmission Date: 20111222
  Serious: Yes (Hospitalization, Other)
  Sender: FDA-Public Use
  Company Number: US-BAYER-201029546NA

PATIENT
  Age: 31 Year
  Sex: Female
  Weight: 54.422 kg

DRUGS (7)
  1. CYCLOBENZAPRINE [Concomitant]
     Indication: MUSCLE RELAXANT THERAPY
     Dosage: 10 MG, QD
     Dates: start: 20080821
  2. AZITHROMYCIN [Concomitant]
     Dosage: UNK
     Dates: start: 20080717
  3. YASMIN [Suspect]
     Indication: CONTRACEPTION
     Dosage: UNK
     Route: 048
     Dates: start: 20050816, end: 20070101
  4. YAZ [Suspect]
     Indication: CONTRACEPTION
     Dosage: UNK
     Route: 048
     Dates: start: 20070510, end: 20080201
  5. YAZ [Suspect]
     Indication: PREMENSTRUAL SYNDROME
     Dosage: UNK
     Dates: start: 20080422, end: 20080911
  6. AVELOX [Concomitant]
     Dosage: UNK
     Dates: start: 20080724
  7. YASMIN [Suspect]
     Indication: PREMENSTRUAL SYNDROME

REACTIONS (6)
  - DEEP VEIN THROMBOSIS [None]
  - ANXIETY [None]
  - MENTAL DISORDER [None]
  - DYSPNOEA [None]
  - PANIC ATTACK [None]
  - PULMONARY EMBOLISM [None]
